FAERS Safety Report 6520712-3 (Version None)
Quarter: 2009Q4

REPORT INFORMATION
  Report Type: 
  Country: None (occurrence: None)
  Receive Date: 20091229
  Receipt Date: 20091223
  Transmission Date: 20100525
  Serious: Yes (Hospitalization)
  Sender: FDA-Public Use
  Company Number: US-JNJFOC-20090905740

PATIENT
  Sex: Female
  Weight: 50 kg

DRUGS (29)
  1. GOLIMUMAB [Suspect]
     Route: 058
     Dates: start: 20070208
  2. GOLIMUMAB [Suspect]
     Route: 058
     Dates: start: 20070208
  3. GOLIMUMAB [Suspect]
     Route: 058
     Dates: start: 20070208
  4. GOLIMUMAB [Suspect]
     Route: 058
     Dates: start: 20070208
  5. GOLIMUMAB [Suspect]
     Route: 058
     Dates: start: 20070208
  6. GOLIMUMAB [Suspect]
     Route: 058
     Dates: start: 20070208
  7. GOLIMUMAB [Suspect]
     Route: 058
     Dates: start: 20070208
  8. GOLIMUMAB [Suspect]
     Route: 058
     Dates: start: 20070208
  9. GOLIMUMAB [Suspect]
     Route: 058
     Dates: start: 20070208
  10. GOLIMUMAB [Suspect]
     Route: 058
     Dates: start: 20070208
  11. GOLIMUMAB [Suspect]
     Route: 058
     Dates: start: 20070208
  12. GOLIMUMAB [Suspect]
     Route: 058
     Dates: start: 20070208
  13. GOLIMUMAB [Suspect]
     Route: 058
     Dates: start: 20070208
  14. GOLIMUMAB [Suspect]
     Indication: RHEUMATOID ARTHRITIS
     Route: 058
     Dates: start: 20070208
  15. LORCET-HD [Concomitant]
     Route: 048
  16. VALIUM [Concomitant]
     Route: 048
  17. CELEXA [Concomitant]
     Route: 048
  18. CELEBREX [Concomitant]
     Route: 048
  19. ASPIRIN [Concomitant]
     Route: 048
  20. PREMPRO [Concomitant]
     Route: 048
  21. HYDROCODONE [Concomitant]
     Route: 048
  22. ACTONEL [Concomitant]
     Route: 048
  23. ZOLPIDEM [Concomitant]
     Route: 048
  24. LASIX [Concomitant]
     Route: 048
  25. POTASSIUM [Concomitant]
     Route: 048
  26. KADIAN [Concomitant]
     Route: 048
  27. FLORASTOR [Concomitant]
     Route: 048
  28. LYRICA [Concomitant]
     Route: 048
  29. MORPHINE SULFATE [Concomitant]
     Route: 048

REACTIONS (14)
  - ANAEMIA [None]
  - BLOOD PH INCREASED [None]
  - CARDIAC FAILURE CONGESTIVE [None]
  - CULTURE URINE POSITIVE [None]
  - ENCEPHALOPATHY [None]
  - ESCHERICHIA INFECTION [None]
  - GASTROINTESTINAL HAEMORRHAGE [None]
  - H1N1 INFLUENZA [None]
  - HILAR LYMPHADENOPATHY [None]
  - PLEURAL EFFUSION [None]
  - PNEUMONIA [None]
  - RECTAL HAEMORRHAGE [None]
  - RENAL FAILURE [None]
  - RESPIRATORY FAILURE [None]
